FAERS Safety Report 16942965 (Version 1)
Quarter: 2019Q4

REPORT INFORMATION
  Report Type: Spontaneous
  Country: KR (occurrence: KR)
  Receive Date: 20191021
  Receipt Date: 20191021
  Transmission Date: 20200122
  Serious: Yes (Hospitalization, Other)
  Sender: FDA-Public Use
  Company Number: KR-ALLERGAN-1942228US

PATIENT
  Sex: Male

DRUGS (4)
  1. PHENTERMINE. [Suspect]
     Active Substance: PHENTERMINE
     Indication: MEDICAL DIET
     Dosage: UNK
  2. TOPIRAMATE. [Suspect]
     Active Substance: TOPIRAMATE
     Indication: MEDICAL DIET
     Dosage: UNK
  3. FLUOXETINE HCL UNK [Suspect]
     Active Substance: FLUOXETINE HYDROCHLORIDE
     Indication: MEDICAL DIET
     Dosage: UNK
  4. CAFFEINE. [Suspect]
     Active Substance: CAFFEINE
     Indication: MEDICAL DIET
     Dosage: UNK

REACTIONS (3)
  - Intentional overdose [Unknown]
  - Affective disorder [Recovered/Resolved]
  - Off label use [Unknown]
